FAERS Safety Report 10152798 (Version 1)
Quarter: 2014Q2

REPORT INFORMATION
  Report Type: Report from Study
  Country: US (occurrence: US)
  Receive Date: 20140505
  Receipt Date: 20140505
  Transmission Date: 20141212
  Serious: Yes (Other)
  Sender: FDA-Public Use
  Company Number: US-GILEAD-2014-0101162

PATIENT
  Age: 67 Year
  Sex: Female

DRUGS (1)
  1. ADEFOVIR DIPIVOXIL [Suspect]
     Indication: HEPATITIS B
     Dosage: 10 MG, UNK
     Route: 065

REACTIONS (2)
  - Neoplasm malignant [Unknown]
  - Drug dispensing error [Unknown]
